FAERS Safety Report 7470535-6 (Version None)
Quarter: 2011Q2

REPORT INFORMATION
  Report Type: 
  Country: None (occurrence: None)
  Receive Date: 20110510
  Receipt Date: 20110428
  Transmission Date: 20111010
  Serious: Yes (Hospitalization)
  Sender: FDA-Public Use
  Company Number: US-ACTELION-A-US2011-48178

PATIENT

DRUGS (3)
  1. REVATIO [Concomitant]
  2. CALCIUM CHANNEL BLOCKERS [Concomitant]
  3. TRACLEER [Suspect]
     Indication: PULMONARY ARTERIAL HYPERTENSION
     Dosage: UNK
     Route: 048
     Dates: start: 20110310

REACTIONS (5)
  - FATIGUE [None]
  - CLOSTRIDIAL INFECTION [None]
  - PULMONARY FIBROSIS [None]
  - DYSPNOEA [None]
  - DIARRHOEA [None]
